FAERS Safety Report 7170550-6 (Version None)
Quarter: 2010Q4

REPORT INFORMATION
  Report Type: 
  Country: None (occurrence: None)
  Receive Date: 20101203
  Receipt Date: 20101118
  Transmission Date: 20110411
  Serious: Yes (Other)
  Sender: FDA-Public Use
  Company Number: 2010MA004887

PATIENT
  Age: 46 Year
  Sex: Male

DRUGS (4)
  1. TEMAZEPAM [Suspect]
     Indication: ANXIETY
     Dosage: PO
     Route: 048
  2. CLOZARIL [Suspect]
     Indication: SCHIZOPHRENIA
     Dosage: 650 MG; QD; PO
     Route: 048
     Dates: start: 20080807
  3. PROCYCLIDINE HYDROCHLORIDE 2MG TAB [Concomitant]
  4. VENLAFAXINE [Concomitant]

REACTIONS (1)
  - PROSTATE CANCER [None]
